FAERS Safety Report 5134548-1 (Version None)
Quarter: 2006Q4

REPORT INFORMATION
  Report Type: 
  Country: None (occurrence: None)
  Receive Date: 20061019
  Receipt Date: 20061004
  Transmission Date: 20070319
  Serious: Yes (Hospitalization)
  Sender: FDA-Public Use
  Company Number: 2006RR-04031

PATIENT
  Age: 87 Year
  Sex: Female

DRUGS (13)
  1. IBUPROFEN [Suspect]
     Indication: OSTEOARTHRITIS
     Dosage: 400 MG, TID, ORAL
     Route: 048
     Dates: start: 19970101, end: 20060828
  2. CALMURID [Concomitant]
  3. AMILORIDE HYDROCHLORIDE [Concomitant]
  4. FUROSEMIDE [Concomitant]
  5. CODEINE PHOSPHATE [Concomitant]
  6. ACETAMINOPHEN [Concomitant]
  7. IRON SULPHATE [Concomitant]
  8. LACTULOSE [Concomitant]
  9. MOVELAT [Concomitant]
  10. LANTOPROST [Concomitant]
  11. NITRAZEPAM [Concomitant]
  12. PANTOPRAZOLE SODIUM [Concomitant]
  13. SENNA [Concomitant]

REACTIONS (1)
  - HAEMATEMESIS [None]
